FAERS Safety Report 18794796 (Version 1)
Quarter: 2021Q1

REPORT INFORMATION
  Report Type: Spontaneous
  Country: FI (occurrence: FI)
  Receive Date: 20210127
  Receipt Date: 20210127
  Transmission Date: 20210419
  Serious: Yes (Life-Threatening)
  Sender: FDA-Public Use
  Company Number: FI-PFIZER INC-2021060668

PATIENT
  Age: 69 Year
  Sex: Male

DRUGS (20)
  1. COMTESS [Concomitant]
     Active Substance: ENTACAPONE
     Indication: PARKINSONISM
     Dosage: 1 G, DAILY
     Route: 048
  2. FENTANYL HAMELN [Concomitant]
     Active Substance: FENTANYL CITRATE
     Dosage: 75 UG, DAILY
     Route: 042
     Dates: start: 20201225, end: 20201225
  3. FUROSEMIDE FRESENIUS KABI [Concomitant]
     Dosage: UNK, AS NEEDED
     Route: 042
     Dates: start: 20201226
  4. PREDNISOLON [PREDNISOLONE] [Concomitant]
     Active Substance: PREDNISOLONE
     Route: 048
     Dates: start: 20201229, end: 20201231
  5. MIDAZOLAM HAMELN [Concomitant]
     Active Substance: MIDAZOLAM HYDROCHLORIDE
     Indication: EPILEPSY
     Dosage: UNK, AS NEEDED
     Route: 042
     Dates: start: 20201225
  6. ATOSIL [PROMETHAZINE HYDROCHLORIDE] [Concomitant]
     Active Substance: PROMETHAZINE HYDROCHLORIDE
     Indication: HYPERSENSITIVITY
     Dosage: 50 MG X 1
     Route: 042
     Dates: start: 20201224, end: 20201224
  7. NEUPRO [Concomitant]
     Active Substance: ROTIGOTINE
     Indication: PARKINSONISM
     Dosage: 2 MG, DAILY
     Route: 062
  8. HYDANTIN [PHENYTOIN] [Concomitant]
     Indication: EPILEPSY
     Dosage: 300 MG, DAILY
     Route: 048
     Dates: start: 20201226, end: 20201228
  9. ELDEPRYL [Concomitant]
     Active Substance: SELEGILINE HYDROCHLORIDE
     Indication: PARKINSONISM
     Dosage: 10 MG, DAILY
     Route: 048
  10. CEFUROXIM MIP PHARMA [Concomitant]
     Dosage: 1.5 G X 1
     Route: 042
     Dates: start: 20201225, end: 20201225
  11. ATORVASTATIN KRKA [Concomitant]
     Active Substance: ATORVASTATIN
     Indication: HYPERCHOLESTEROLAEMIA
     Dosage: 40 MG, DAILY
     Route: 048
  12. MADOPAR [Concomitant]
     Active Substance: BENSERAZIDE HYDROCHLORIDE\LEVODOPA
     Indication: PARKINSONISM
     Dosage: 2.5 DF, DAILY
     Route: 048
  13. CLINDAMYCIN FRESENIUS KABI [Concomitant]
     Active Substance: CLINDAMYCIN PHOSPHATE
     Dosage: 1.8 G, DAILY
     Route: 042
     Dates: start: 20201228
  14. PRO?EPANUTIN [Suspect]
     Active Substance: FOSPHENYTOIN SODIUM
     Indication: STATUS EPILEPTICUS
     Dosage: UNK
     Route: 042
     Dates: start: 20201225, end: 20201226
  15. CIPROFLOXACIN FRESENIUS KABI [CIPROFLOXACIN HYDROGEN SULFATE] [Concomitant]
     Dosage: 400 MG, DAILY
     Route: 042
     Dates: start: 20201228
  16. DIAPAM [DIAZEPAM] [Concomitant]
     Route: 048
     Dates: start: 20201226
  17. LORAZEPAM. [Concomitant]
     Active Substance: LORAZEPAM
     Route: 042
     Dates: start: 20201224
  18. PANADOL FORTE [PARACETAMOL] [Concomitant]
     Indication: PAIN
     Dosage: UNK UNK, AS NEEDED
     Route: 048
  19. LEVETIRACETAM SUN [Concomitant]
     Indication: EPILEPSY
     Dosage: 2 G X 1
     Route: 042
     Dates: start: 20201225, end: 20201225
  20. HISTEC [Concomitant]
     Active Substance: CETIRIZINE HYDROCHLORIDE
     Dosage: 20 MG, DAILY
     Route: 048
     Dates: start: 20201225

REACTIONS (1)
  - Toxic epidermal necrolysis [Not Recovered/Not Resolved]

NARRATIVE: CASE EVENT DATE: 20201225
